FAERS Safety Report 12411922 (Version 1)
Quarter: 2016Q2

REPORT INFORMATION
  Report Type: Spontaneous
  Country: FR (occurrence: FR)
  Receive Date: 20160527
  Receipt Date: 20160527
  Transmission Date: 20160815
  Serious: Yes (Life-Threatening, Other)
  Sender: FDA-Public Use
  Company Number: FR-PFIZER INC-2016269659

PATIENT
  Age: 37 Year
  Sex: Male

DRUGS (4)
  1. SUFENTANIL MYLAN [Concomitant]
     Active Substance: SUFENTANIL
     Indication: INDUCTION OF ANAESTHESIA
     Dosage: 1 DF, SINGLE
     Route: 042
     Dates: start: 20150630, end: 20150630
  2. PROPOFOL MYLAN [Concomitant]
     Active Substance: PROPOFOL
     Indication: INDUCTION OF ANAESTHESIA
     Dosage: 1 DF, SINGLE
     Route: 042
     Dates: start: 20150630, end: 20150630
  3. ATRACURIUM BESILATE [Suspect]
     Active Substance: ATRACURIUM BESYLATE
     Indication: INDUCTION OF ANAESTHESIA
     Dosage: 1 DF, SINGLE
     Route: 042
     Dates: start: 20150630, end: 20150630
  4. KETAMINE RENAUDIN [Concomitant]
     Active Substance: KETAMINE
     Indication: INDUCTION OF ANAESTHESIA
     Dosage: 1 DF, SINGLE
     Route: 042
     Dates: start: 20150630, end: 20150630

REACTIONS (4)
  - Anaphylactic shock [Recovered/Resolved]
  - Tachycardia [Unknown]
  - Hypotension [Unknown]
  - Rash erythematous [Unknown]

NARRATIVE: CASE EVENT DATE: 20150630
